FAERS Safety Report 7586808-2 (Version None)
Quarter: 2011Q3

REPORT INFORMATION
  Report Type: 
  Country: None (occurrence: None)
  Receive Date: 20110701
  Receipt Date: 20110616
  Transmission Date: 20111222
  Serious: Yes (Hospitalization)
  Sender: FDA-Public Use
  Company Number: PHHY2011JP53528

PATIENT
  Age: 85 Year
  Sex: Male

DRUGS (9)
  1. OLANZAPINE [Suspect]
     Dosage: 5 MG, UNK
     Route: 048
  2. FLUNITRAZEPAM [Suspect]
     Dosage: 1 MG, UNK
  3. TIAPRIDE [Suspect]
     Dosage: UNK
  4. MIANSERIN [Suspect]
     Dosage: 10 MG, UNK
  5. QUETIAPINE [Suspect]
     Dosage: UNK
  6. FLUNITRAZEPAM [Suspect]
     Route: 042
  7. HALOPERIDOL [Suspect]
     Indication: DELIRIUM
     Dosage: UNK
     Route: 042
  8. VALPROATE SODIUM [Suspect]
     Dosage: 100 MG, UNK
  9. VALPROATE SODIUM [Suspect]
     Dosage: 600 MG, UNK

REACTIONS (19)
  - DRUG INEFFECTIVE [None]
  - FRACTURE [None]
  - INSOMNIA [None]
  - DYSPHAGIA [None]
  - SEDATION [None]
  - SUBDURAL HAEMATOMA [None]
  - BRAIN CONTUSION [None]
  - PANCYTOPENIA [None]
  - URINARY RETENTION [None]
  - ABNORMAL BEHAVIOUR [None]
  - SUBARACHNOID HAEMORRHAGE [None]
  - SOMNOLENCE [None]
  - FALL [None]
  - AGGRESSION [None]
  - AGITATION [None]
  - SUBDURAL HYGROMA [None]
  - SPEECH DISORDER [None]
  - BEDRIDDEN [None]
  - EATING DISORDER [None]
